FAERS Safety Report 14836680 (Version 1)
Quarter: 2018Q2

REPORT INFORMATION
  Report Type: Spontaneous
  Country: US (occurrence: US)
  Receive Date: 20180502
  Receipt Date: 20180502
  Transmission Date: 20180711
  Serious: No
  Sender: FDA-Public Use
  Company Number: US-BAYER-2018-081928

PATIENT
  Age: 75 Year
  Sex: Female
  Weight: 72 kg

DRUGS (2)
  1. MIRALAX [Suspect]
     Active Substance: POLYETHYLENE GLYCOL 3350
     Indication: GASTROINTESTINAL DISORDER
     Dosage: 1 PACKET PER DAY DOSE
     Route: 048
     Dates: start: 20180419, end: 20180425
  2. DIAZEPAM. [Concomitant]
     Active Substance: DIAZEPAM
     Indication: HEART RATE IRREGULAR

REACTIONS (1)
  - Drug ineffective [Unknown]
